FAERS Safety Report 10168977 (Version 1)
Quarter: 2014Q2

REPORT INFORMATION
  Report Type: Spontaneous
  Country: IT (occurrence: None)
  Receive Date: 20140509
  Receipt Date: 20140509
  Transmission Date: 20141212
  Serious: Yes (Other)
  Sender: FDA-Public Use
  Company Number: AUR-APL-2014-05366

PATIENT
  Age: 44 Year
  Sex: Female

DRUGS (6)
  1. ESCITALOPRAM [Suspect]
     Indication: DEPRESSION
     Dosage: 20MG 1D
  2. VALPROATE SODIUM (VALPROATE SODIUM) [Concomitant]
  3. LITHIUM (LITHIUM) [Concomitant]
  4. INDOMETHACIN (INDOMETACIN) [Concomitant]
  5. CAFFEINE (CAFFEINE) [Concomitant]
  6. PROCHLORPERAZINE (PROCHLORPERAZINE) [Concomitant]

REACTIONS (14)
  - Tremor [None]
  - Depression [None]
  - Nervousness [None]
  - Irritability [None]
  - Dysphoria [None]
  - Agitation [None]
  - Migraine [None]
  - Headache [None]
  - Neck pain [None]
  - Trismus [None]
  - Musculoskeletal pain [None]
  - Drug ineffective [None]
  - Tooth erosion [None]
  - Tooth fracture [None]
